FAERS Safety Report 18494808 (Version 2)
Quarter: 2020Q4

REPORT INFORMATION
  Report Type: Spontaneous
  Country: DE (occurrence: DE)
  Receive Date: 20201112
  Receipt Date: 20201221
  Transmission Date: 20210114
  Serious: Yes (Life-Threatening, Hospitalization, Other)
  Sender: FDA-Public Use
  Company Number: DE-TILLOMEDPR-2020-EPL-001806

PATIENT
  Age: 22 Month

DRUGS (11)
  1. GRANULOCYTE COLONY-STIMULATING FACTOR [Concomitant]
     Active Substance: GRANULOCYTE COLONY-STIMULATING FACTOR NOS
     Dosage: 5 MICROGRAM/KILOGRAM,DAILY 2 HRS
     Route: 042
  2. URSODIOL. [Concomitant]
     Active Substance: URSODIOL
     Dosage: 300 MILLIGRAM/SQ. METER DAILY
     Route: 048
  3. MELPHALAN. [Suspect]
     Active Substance: MELPHALAN
     Indication: NEUROBLASTOMA
     Dosage: 140 MILLIGRAM/SQ. METER, 15 MINUTES
     Route: 042
  4. LEVETIRACETAM. [Concomitant]
     Active Substance: LEVETIRACETAM
     Dosage: 10 MILLIGRAM PER KILOGRAM,DAILY
     Route: 048
  5. TRANEXAMIC ACID. [Suspect]
     Active Substance: TRANEXAMIC ACID
     Dosage: 7.5 MILLIGRAM PER KILOGRAM,15 MG TA/KG BODY WEIGHT IN TWO BOLUSES
     Route: 042
  6. TRANEXAMIC ACID. [Suspect]
     Active Substance: TRANEXAMIC ACID
     Indication: HAEMORRHAGE
     Dosage: 15 MILLIGRAM PER KILOGRAM TWO BOLUSES WITHIN 2 HOUR
     Route: 042
  7. BUSULFAN. [Suspect]
     Active Substance: BUSULFAN
     Indication: NEUROBLASTOMA
     Dosage: 1.1 MILLIGRAM PER KILOGRAM,1 HR
     Route: 042
  8. URSODIOL. [Concomitant]
     Active Substance: URSODIOL
     Dosage: 600 MILLIGRAM/SQ. METER DAILY
     Route: 048
  9. MELPHALAN. [Suspect]
     Active Substance: MELPHALAN
     Indication: BONE MARROW CONDITIONING REGIMEN
     Dosage: UNK
  10. MELPHALAN. [Suspect]
     Active Substance: MELPHALAN
     Dosage: 140 MILLIGRAM/SQ. METER,15 MIN,UNK
     Route: 042
  11. BUSULFAN. [Suspect]
     Active Substance: BUSULFAN
     Indication: BONE MARROW CONDITIONING REGIMEN
     Dosage: UNK,CONCENTRATE FOR SOLUTION FOR INFUSION

REACTIONS (1)
  - Venoocclusive liver disease [Recovered/Resolved]
